FAERS Safety Report 7578571-6 (Version None)
Quarter: 2011Q2

REPORT INFORMATION
  Report Type: 
  Country: None (occurrence: None)
  Receive Date: 20110628
  Receipt Date: 20110621
  Transmission Date: 20111010
  Serious: No
  Sender: FDA-Public Use
  Company Number: US-JNJFOC-20101206253

PATIENT

DRUGS (1)
  1. LEVAQUIN [Suspect]
     Indication: INFECTION
     Route: 065
     Dates: start: 20100401

REACTIONS (7)
  - DISABILITY [None]
  - MYALGIA [None]
  - PAIN [None]
  - TENDON PAIN [None]
  - ASTHENIA [None]
  - CONFUSIONAL STATE [None]
  - ARTHRALGIA [None]
